FAERS Safety Report 22630604 (Version 3)
Quarter: 2023Q4

REPORT INFORMATION
  Report Type: Spontaneous
  Country: JP (occurrence: JP)
  Receive Date: 20230622
  Receipt Date: 20231114
  Transmission Date: 20240110
  Serious: Yes (Hospitalization, Other)
  Sender: FDA-Public Use
  Company Number: JP-ONO-2023JP015918

PATIENT
  Age: 78 Year
  Sex: Female
  Weight: 56 kg

DRUGS (4)
  1. OPDIVO [Suspect]
     Active Substance: NIVOLUMAB
     Indication: Oesophageal carcinoma
     Route: 041
     Dates: start: 20221101
  2. OPDIVO [Suspect]
     Active Substance: NIVOLUMAB
     Dosage: 240 MG, Q2W
     Route: 041
     Dates: start: 20221130, end: 20230104
  3. CISPLATIN [Concomitant]
     Active Substance: CISPLATIN
     Indication: Oesophageal carcinoma
     Dates: start: 20221101
  4. FLUOROURACIL [Concomitant]
     Active Substance: FLUOROURACIL
     Indication: Oesophageal carcinoma
     Dates: start: 20221101

REACTIONS (6)
  - Aplasia pure red cell [Recovering/Resolving]
  - Interstitial lung disease [Recovering/Resolving]
  - Nausea [Unknown]
  - Hyponatraemia [Unknown]
  - Decreased appetite [Unknown]
  - Malaise [Unknown]

NARRATIVE: CASE EVENT DATE: 20221101
